FAERS Safety Report 5580596-7 (Version None)
Quarter: 2007Q4

REPORT INFORMATION
  Report Type: 
  Country: None (occurrence: None)
  Receive Date: 20071130
  Receipt Date: 20070710
  Transmission Date: 20080405
  Serious: No
  Sender: FDA-Public Use
  Company Number: US200707002713

PATIENT
  Age: 71 Year
  Sex: Female

DRUGS (5)
  1. BYETTA [Suspect]
     Indication: DIABETES MELLITUS
     Dosage: 5 UG, 2/D, SUBCUTANEOUS ; 10 UG, 2/D, SUBCUTANEOUS
     Route: 058
     Dates: start: 20070301, end: 20070501
  2. BYETTA [Suspect]
     Indication: DIABETES MELLITUS
     Dosage: 5 UG, 2/D, SUBCUTANEOUS ; 10 UG, 2/D, SUBCUTANEOUS
     Route: 058
     Dates: start: 20070501
  3. GLIPIZIDE [Concomitant]
  4. METFORMIN HCL [Concomitant]
  5. AVANDIA [Concomitant]

REACTIONS (6)
  - BLOOD GLUCOSE FLUCTUATION [None]
  - DECREASED APPETITE [None]
  - EARLY SATIETY [None]
  - NAUSEA [None]
  - VOMITING [None]
  - WEIGHT DECREASED [None]
